FAERS Safety Report 23913070 (Version 1)
Quarter: 2024Q2

REPORT INFORMATION
  Report Type: Spontaneous
  Country: CN (occurrence: CN)
  Receive Date: 20240529
  Receipt Date: 20240529
  Transmission Date: 20240715
  Serious: Yes (Other)
  Sender: FDA-Public Use
  Company Number: CN-002147023-NVSC2024CN111092

PATIENT
  Age: 77 Year
  Sex: Male
  Weight: 56 kg

DRUGS (1)
  1. DEXAMETHASONE\TOBRAMYCIN [Suspect]
     Active Substance: DEXAMETHASONE\TOBRAMYCIN
     Indication: Ulcerative keratitis
     Dosage: 1 DRP, QID
     Route: 047
     Dates: start: 20240417, end: 20240513

REACTIONS (2)
  - Corneal opacity [Recovered/Resolved]
  - Conjunctival hyperaemia [Recovered/Resolved]

NARRATIVE: CASE EVENT DATE: 20240513
